FAERS Safety Report 9475499 (Version 1)
Quarter: 2013Q3

REPORT INFORMATION
  Report Type: Spontaneous
  Country: CH (occurrence: CH)
  Receive Date: 20130826
  Receipt Date: 20130826
  Transmission Date: 20140515
  Serious: Yes (Hospitalization, Other)
  Sender: FDA-Public Use
  Company Number: CH-009507513-1308CHE009755

PATIENT
  Age: 59 Year
  Sex: Female

DRUGS (8)
  1. ZOCOR [Suspect]
     Indication: ARTERIOSCLEROSIS
     Dosage: 40 MG, QD
     Route: 048
     Dates: start: 2001, end: 20130715
  2. ZOCOR [Suspect]
     Indication: HYPERLIPIDAEMIA
  3. LISINOPRIL [Suspect]
     Indication: HYPERTENSIVE HEART DISEASE
     Dosage: 20 MG, QD
     Route: 048
     Dates: start: 2004, end: 20130715
  4. PONSTAN [Suspect]
     Indication: BACK PAIN
     Dosage: 500 MG, PRN
     Route: 048
     Dates: end: 201306
  5. COMILORID-MEPHA TABLETS [Suspect]
     Dosage: 1 DF, EVERY 2-3 DAYS
     Route: 048
     Dates: end: 20130715
  6. PANTOZOL [Concomitant]
  7. IMOVANE [Concomitant]
  8. ASPIRIN [Concomitant]
     Dosage: UNK
     Dates: start: 2001

REACTIONS (6)
  - Renal failure acute [Recovered/Resolved]
  - Diarrhoea [Recovered/Resolved]
  - Vomiting [Recovered/Resolved]
  - Metabolic acidosis [Recovered/Resolved]
  - Eosinophilia [Recovering/Resolving]
  - Colitis [Recovered/Resolved]
